FAERS Safety Report 9765893 (Version 1)
Quarter: 2013Q4

REPORT INFORMATION
  Report Type: Spontaneous
  Country: US (occurrence: US)
  Receive Date: 20131217
  Receipt Date: 20131217
  Transmission Date: 20140711
  Serious: Yes (Other)
  Sender: FDA-Public Use
  Company Number: US-GLAXOSMITHKLINE-A1013080A

PATIENT
  Age: 76 Year
  Sex: Male

DRUGS (2)
  1. VOTRIENT [Suspect]
     Indication: SOFT TISSUE CANCER
     Dosage: 800MG PER DAY
     Route: 048
     Dates: start: 20130118, end: 20130215
  2. TEMODAR [Concomitant]
     Indication: SOFT TISSUE CANCER
     Dosage: 90MG PER DAY
     Route: 048
     Dates: start: 20120709, end: 20121218

REACTIONS (1)
  - Cardiac failure congestive [Unknown]
